FAERS Safety Report 24635655 (Version 2)
Quarter: 2025Q1

REPORT INFORMATION
  Report Type: Report from Study
  Country: BR (occurrence: BR)
  Receive Date: 20241119
  Receipt Date: 20250127
  Transmission Date: 20250408
  Serious: No
  Sender: TAKEDA
  Company Number: BR-TAKEDA-2024TUS114366

PATIENT
  Age: 22 Year
  Sex: Female
  Weight: 70 kg

DRUGS (1)
  1. VEDOLIZUMAB [Suspect]
     Active Substance: VEDOLIZUMAB
     Indication: Colitis ulcerative

REACTIONS (3)
  - No adverse event [Unknown]
  - Inappropriate schedule of product administration [Unknown]
  - Product availability issue [Unknown]

NARRATIVE: CASE EVENT DATE: 20241026
